FAERS Safety Report 7578362-6 (Version None)
Quarter: 2011Q2

REPORT INFORMATION
  Report Type: 
  Country: None (occurrence: None)
  Receive Date: 20110621
  Receipt Date: 20110611
  Transmission Date: 20111010
  Serious: Yes (Hospitalization)
  Sender: FDA-Public Use
  Company Number: POMP-11092

PATIENT
  Age: 41 Year
  Sex: Female
  Weight: 84 kg

DRUGS (3)
  1. MYOZYME [Suspect]
     Indication: GLYCOGEN STORAGE DISEASE TYPE II
     Dosage: 20 MG/KG, Q2W, INTRAVENOUS
     Route: 042
     Dates: start: 20070314
  2. MYOZYME [Suspect]
  3. NEURONTIN [Concomitant]

REACTIONS (1)
  - DRUG ERUPTION [None]
